FAERS Safety Report 13611614 (Version 2)
Quarter: 2017Q2

REPORT INFORMATION
  Report Type: Spontaneous
  Country: JP (occurrence: JP)
  Receive Date: 20170605
  Receipt Date: 20170609
  Transmission Date: 20170830
  Serious: Yes (Hospitalization)
  Sender: FDA-Public Use
  Company Number: JP-SUCAMPO PHARMACEUTICALS, INC.-SPI201700741

PATIENT
  Age: 82 Year
  Sex: Male

DRUGS (11)
  1. EQUA [Concomitant]
     Active Substance: VILDAGLIPTIN
     Route: 048
  2. BAYASPIRIN [Concomitant]
     Active Substance: ASPIRIN
     Route: 048
  3. AMITIZA [Suspect]
     Active Substance: LUBIPROSTONE
     Indication: CONSTIPATION
     Dosage: UNK
     Route: 048
     Dates: start: 20170417, end: 20170527
  4. AMLODIN [Concomitant]
     Active Substance: AMLODIPINE BESYLATE
     Route: 048
  5. FLORINEF ACETATE [Concomitant]
     Active Substance: FLUDROCORTISONE ACETATE
     Dosage: UNK
     Route: 048
     Dates: end: 20170530
  6. UNKNOWN [Concomitant]
     Active Substance: UNSPECIFIED INGREDIENT
     Route: 048
  7. UNKNOWN [Concomitant]
     Active Substance: UNSPECIFIED INGREDIENT
  8. NIVADIL [Concomitant]
     Active Substance: NILVADIPINE
     Route: 048
  9. DAIKENCHUTO [Concomitant]
     Active Substance: HERBALS
     Route: 048
  10. UNKNOWN [Concomitant]
     Active Substance: UNSPECIFIED INGREDIENT
     Route: 048
  11. UNKNOWN [Concomitant]
     Active Substance: UNSPECIFIED INGREDIENT
     Route: 048

REACTIONS (1)
  - Hyponatraemia [Recovered/Resolved]

NARRATIVE: CASE EVENT DATE: 20170424
